FAERS Safety Report 7308156-8 (Version None)
Quarter: 2011Q1

REPORT INFORMATION
  Report Type: 
  Country: None (occurrence: None)
  Receive Date: 20110223
  Receipt Date: 20110217
  Transmission Date: 20110831
  Serious: Yes (Hospitalization)
  Sender: FDA-Public Use
  Company Number: US-B.I. PHARMACEUTICALS,INC./RIDGEFIELD-2011-BP-03779BP

PATIENT
  Sex: Male

DRUGS (8)
  1. ASA [Concomitant]
     Indication: PROPHYLAXIS
  2. POTASSIUM [Concomitant]
     Indication: PROPHYLAXIS
  3. HYDROCODONE [Concomitant]
     Indication: BACK PAIN
  4. VYTORIN [Concomitant]
     Indication: BLOOD CHOLESTEROL INCREASED
  5. JANUVIA [Concomitant]
     Indication: DIABETES MELLITUS
  6. FLOMAX [Suspect]
     Indication: PROSTATIC DISORDER
     Dosage: 0.4 MG
     Route: 048
     Dates: start: 20030101
  7. GLIPIZIDE [Concomitant]
     Indication: DIABETES MELLITUS
  8. PROSCAR [Concomitant]
     Indication: PROSTATIC DISORDER

REACTIONS (3)
  - ATRIAL FIBRILLATION [None]
  - SUPRAVENTRICULAR TACHYCARDIA [None]
  - OESOPHAGEAL RUPTURE [None]
